FAERS Safety Report 21613759 (Version 1)
Quarter: 2022Q4

REPORT INFORMATION
  Report Type: Spontaneous
  Country: DE (occurrence: DE)
  Receive Date: 20221118
  Receipt Date: 20221118
  Transmission Date: 20230113
  Serious: Yes (Hospitalization)
  Sender: FDA-Public Use
  Company Number: None

PATIENT
  Age: 23 Year
  Sex: Male
  Weight: 76 kg

DRUGS (1)
  1. HUMIRA [Suspect]
     Active Substance: ADALIMUMAB
     Indication: Rheumatoid arthritis
     Dosage: JEDE WOCHE 40MG / ALLE 4 WOCHEN 160MG
     Route: 058
     Dates: start: 20210519, end: 20220225

REACTIONS (5)
  - Eye infection [Recovered/Resolved with Sequelae]
  - Anal incontinence [Recovered/Resolved with Sequelae]
  - Acne [Unknown]
  - Keratoconus [Recovered/Resolved with Sequelae]
  - Granuloma [Unknown]

NARRATIVE: CASE EVENT DATE: 20210901
